FAERS Safety Report 7764233-9 (Version None)
Quarter: 2011Q3

REPORT INFORMATION
  Report Type: 
  Country: None (occurrence: None)
  Receive Date: 20110919
  Receipt Date: 20110908
  Transmission Date: 20111222
  Serious: Yes (Other)
  Sender: FDA-Public Use
  Company Number: 2011-01046

PATIENT
  Age: 76 Year
  Sex: Female
  Weight: 67 kg

DRUGS (19)
  1. CALCIUM CARBONATE + CHOLECALCIFEROL + VITAMIN D3 + CHOLECALCIFEROL CON [Concomitant]
  2. CLOPIDOGREL [Concomitant]
  3. ACETAMINOPHEN [Concomitant]
  4. RAMIPRIL [Concomitant]
  5. SIMVASTATIN [Suspect]
     Indication: PRODUCT USED FOR UNKNOWN INDICATION
     Dates: start: 20110901
  6. SIMVASTATIN [Suspect]
     Indication: PRODUCT USED FOR UNKNOWN INDICATION
     Dates: start: 20110725, end: 20110822
  7. VITAMIN B SUBSTANCES (HYDROXOCOBALAMIN) [Concomitant]
  8. HYPROMELLOSE [Concomitant]
  9. LOFEPRAMINE [Concomitant]
  10. OMEPRAZOLE [Concomitant]
  11. TRIMETHOPRIM [Concomitant]
  12. DOCUSATE (DOCUSATE SODIUM) [Concomitant]
  13. GABAPENTIN [Concomitant]
  14. LORATADINE [Concomitant]
  15. ZOPICLONE [Concomitant]
  16. CETOSTEARYL ALCOHOL (AQUEOUS CREAM) [Concomitant]
  17. MEPTAZINOL [Concomitant]
  18. DILTIAZEM HYDROCHLORIDE (SLOZEM) [Concomitant]
  19. BECLOMETHASONE DIPROPIONATE [Concomitant]

REACTIONS (1)
  - CONTUSION [None]
